FAERS Safety Report 18730099 (Version 3)
Quarter: 2021Q1

REPORT INFORMATION
  Report Type: Report from Study
  Country: KR (occurrence: KR)
  Receive Date: 20210112
  Receipt Date: 20210119
  Transmission Date: 20210419
  Serious: Yes (Hospitalization, Other)
  Sender: FDA-Public Use
  Company Number: KR-ROCHE-2700659

PATIENT
  Age: 45 Year
  Sex: Male
  Weight: 70.4 kg

DRUGS (7)
  1. FEROBA YOU SR [Concomitant]
     Indication: ANAEMIA
     Dates: start: 20201201
  2. URSODEOXYCHOLIC ACID [Concomitant]
     Active Substance: URSODIOL
     Dates: start: 20191227
  3. ATEZOLIZUMAB. [Suspect]
     Active Substance: ATEZOLIZUMAB
     Indication: HEPATOCELLULAR CARCINOMA
     Dosage: DOSE LAST STUDY DRUG ADMIN PRIOR ADVERSE EVENT (AE) AND SERIOUS ADVERSE EVENT (SAE) WAS 1200 MG ON 1
     Route: 042
     Dates: start: 20200302
  4. FEROBA YOU SR [Concomitant]
     Indication: IRON DEFICIENCY
  5. BEVACIZUMAB. [Suspect]
     Active Substance: BEVACIZUMAB
     Indication: HEPATOCELLULAR CARCINOMA
     Dosage: START DATE OF MOST RECENT DOSE OF STUDY DRUG PRIOR TO AE AND SAE WAS 1134 MG ON 19/OCT/2020?AT A DOS
     Route: 042
     Dates: start: 20200302
  6. NEXIUM [Concomitant]
     Active Substance: ESOMEPRAZOLE MAGNESIUM
     Indication: GASTRIC ULCER
     Dates: start: 20200819
  7. ENTECAVIR. [Concomitant]
     Active Substance: ENTECAVIR
     Indication: CHRONIC HEPATITIS B
     Dates: start: 2010

REACTIONS (3)
  - Bladder cancer [Unknown]
  - Oesophageal varices haemorrhage [Recovered/Resolved]
  - Prostatitis [Recovered/Resolved]

NARRATIVE: CASE EVENT DATE: 20201019
